FAERS Safety Report 14325311 (Version 3)
Quarter: 2018Q1

REPORT INFORMATION
  Report Type: Spontaneous
  Country: JP (occurrence: JP)
  Receive Date: 20171226
  Receipt Date: 20180111
  Transmission Date: 20180509
  Serious: Yes (Hospitalization)
  Sender: FDA-Public Use
  Company Number: PHJP2017JP037160

PATIENT
  Sex: Female

DRUGS (1)
  1. STALEVO [Suspect]
     Active Substance: CARBIDOPA\ENTACAPONE\LEVODOPA
     Indication: PRODUCT USED FOR UNKNOWN INDICATION
     Dosage: 1 DF, (LEVODOPA 50 MG/CARBIDOPA 5 MG/ENTACAPONE 100 MG)
     Route: 048

REACTIONS (2)
  - Compression fracture [Unknown]
  - Fall [Unknown]
